FAERS Safety Report 15679208 (Version 2)
Quarter: 2019Q1

REPORT INFORMATION
  Report Type: Report from Study
  Country: JP (occurrence: JP)
  Receive Date: 20181203
  Receipt Date: 20190208
  Transmission Date: 20190417
  Serious: Yes (Other)
  Sender: FDA-Public Use
  Company Number: JP-UCBSA-2018052218

PATIENT
  Age: 30 Year
  Sex: Male
  Weight: 42 kg

DRUGS (8)
  1. LACOSAMIDE. [Suspect]
     Active Substance: LACOSAMIDE
     Dosage: 50 MG, ONCE DAILY (QD)
     Route: 048
     Dates: start: 20180116, end: 20180416
  2. MYSTAN [Concomitant]
     Active Substance: CLOBAZAM
     Indication: FOCAL DYSCOGNITIVE SEIZURES
     Dosage: 16 MG DAILY
     Route: 048
  3. EXCEGRAN [Concomitant]
     Active Substance: ZONISAMIDE
     Indication: FOCAL DYSCOGNITIVE SEIZURES
     Dosage: 300 MG DAILY
     Route: 048
  4. LACOSAMIDE. [Suspect]
     Active Substance: LACOSAMIDE
     Indication: FOCAL DYSCOGNITIVE SEIZURES
     Dosage: 50 MG, ONCE DAILY (QD)
     Route: 048
     Dates: start: 20171002, end: 20171030
  5. LACOSAMIDE. [Suspect]
     Active Substance: LACOSAMIDE
     Dosage: 50 MG, 2X/DAY (BID)
     Route: 048
     Dates: start: 20171031, end: 20171218
  6. TEGRETOL [Concomitant]
     Active Substance: CARBAMAZEPINE
     Indication: FOCAL DYSCOGNITIVE SEIZURES
     Dosage: 550 MG DAILY
     Route: 048
  7. ALEVIATIN [Concomitant]
     Active Substance: PHENYTOIN SODIUM
     Indication: FOCAL DYSCOGNITIVE SEIZURES
     Dosage: 240 MG DAILY
     Route: 048
  8. LACOSAMIDE. [Suspect]
     Active Substance: LACOSAMIDE
     Dosage: 75 MG, 2X/DAY (BID)
     Route: 048
     Dates: start: 20171219, end: 20180115

REACTIONS (2)
  - Off label use [Unknown]
  - Epilepsy [Recovered/Resolved]

NARRATIVE: CASE EVENT DATE: 20171002
